FAERS Safety Report 11856308 (Version 1)
Quarter: 2015Q4

REPORT INFORMATION
  Report Type: Spontaneous
  Country: US (occurrence: US)
  Receive Date: 20151221
  Receipt Date: 20151221
  Transmission Date: 20160305
  Serious: Yes (Life-Threatening)
  Sender: FDA-Public Use
  Company Number: US-WEST-WARD PHARMACEUTICALS CORP.-US-H14001-15-02170

PATIENT
  Age: 7 Year
  Sex: Male

DRUGS (1)
  1. ZOLEDRONIC ACID [Suspect]
     Active Substance: ZOLEDRONIC ACID
     Indication: PRODUCT USED FOR UNKNOWN INDICATION
     Route: 041

REACTIONS (9)
  - Leukopenia [None]
  - Metabolic acidosis [None]
  - Pulmonary haemorrhage [None]
  - Thrombocytopenia [None]
  - Diarrhoea [None]
  - Coagulation test abnormal [None]
  - Abdominal distension [None]
  - Systemic inflammatory response syndrome [Recovered/Resolved]
  - Acute respiratory distress syndrome [None]
